FAERS Safety Report 5633767-5 (Version None)
Quarter: 2008Q1

REPORT INFORMATION
  Report Type: 
  Country: None (occurrence: None)
  Receive Date: 20080219
  Receipt Date: 20080204
  Transmission Date: 20080703
  Serious: Yes (Other)
  Sender: FDA-Public Use
  Company Number: ENC200800025

PATIENT
  Age: 61 Year
  Sex: Male

DRUGS (3)
  1. ARGATROBAN [Suspect]
     Dosage: INTRAVENOUS; BID
     Route: 042
     Dates: start: 20080104, end: 20080111
  2. ARGATROBAN [Suspect]
     Dosage: INTRAVENOUS; BID
     Route: 042
     Dates: start: 20080119, end: 20080126
  3. RADICUT (EDARAVONE) [Concomitant]

REACTIONS (4)
  - ANOREXIA [None]
  - DIALYSIS [None]
  - NAUSEA [None]
  - RENAL FAILURE [None]
